FAERS Safety Report 5591449-2 (Version None)
Quarter: 2008Q1

REPORT INFORMATION
  Report Type: 
  Country: None (occurrence: None)
  Receive Date: 20080111
  Receipt Date: 20080102
  Transmission Date: 20080703
  Serious: Yes (Hospitalization)
  Sender: FDA-Public Use
  Company Number: B0501827A

PATIENT
  Age: 29 Year
  Sex: Male

DRUGS (3)
  1. LAMOTRIGINE [Suspect]
     Dosage: 200 MG/ ORAL
     Route: 048
  2. ETHANOL (FORMULATION UNKNOWN) (ALCOHOL) [Suspect]
     Dosage: ORAL
     Route: 048
  3. QUETIAPINE FUMARATE [Suspect]

REACTIONS (13)
  - ALCOHOL POISONING [None]
  - DRUG LEVEL INCREASED [None]
  - DRUG TOXICITY [None]
  - FLUSHING [None]
  - GRAND MAL CONVULSION [None]
  - HYPERHIDROSIS [None]
  - LETHARGY [None]
  - MENTAL STATUS CHANGES [None]
  - OVERDOSE [None]
  - RESPIRATORY DEPTH DECREASED [None]
  - RHABDOMYOLYSIS [None]
  - SEDATION [None]
  - WHITE BLOOD CELL COUNT INCREASED [None]
